FAERS Safety Report 5869790-5 (Version None)
Quarter: 2008Q3

REPORT INFORMATION
  Report Type: 
  Country: None (occurrence: None)
  Receive Date: 20080904
  Receipt Date: 20080814
  Transmission Date: 20090109
  Serious: Yes (Hospitalization)
  Sender: FDA-Public Use
  Company Number: CA-AVENTIS-200813816GDDC

PATIENT
  Age: 67 Year
  Sex: Male
  Weight: 126.2 kg

DRUGS (16)
  1. INSULIN GLARGINE [Suspect]
     Dates: start: 20071114
  2. OPTICLIK (INSULIN INJECTION PEN) [Suspect]
  3. METFORMIN HCL [Suspect]
  4. REACTINE                           /00884302/ [Concomitant]
     Indication: SEASONAL ALLERGY
     Route: 048
     Dates: start: 20020101
  5. VIT D [Concomitant]
     Indication: PROPHYLAXIS
     Dates: start: 20070201
  6. ASPIRIN [Concomitant]
     Indication: PROPHYLAXIS
     Dates: start: 19990101
  7. GLUCOSAMINE + CHONDROITIN [Concomitant]
     Indication: ARTHRITIS
     Dosage: DOSE: 1500/1200
     Dates: start: 20020101
  8. UNKNOWN DRUG [Concomitant]
     Dosage: DOSE QUANTITY: 1
     Route: 055
     Dates: start: 20060101
  9. ADVAIR DISKUS 100/50 [Concomitant]
     Route: 055
     Dates: start: 20060101
  10. NASONEX [Concomitant]
     Route: 055
     Dates: start: 20070601
  11. NEXIUM [Concomitant]
     Indication: PROPHYLAXIS
     Route: 048
     Dates: start: 20020101
  12. CRESTOR [Concomitant]
     Route: 048
     Dates: start: 20060101, end: 20080225
  13. CRESTOR [Concomitant]
     Route: 048
     Dates: start: 20080226, end: 20080326
  14. CRESTOR [Concomitant]
     Route: 048
     Dates: start: 20080327
  15. METOPROLOL [Concomitant]
     Indication: ATRIAL FIBRILLATION
     Route: 048
     Dates: start: 20080327
  16. WARFARIN SODIUM [Concomitant]
     Indication: ATRIAL FIBRILLATION
     Route: 048
     Dates: start: 20080327

REACTIONS (1)
  - SYNCOPE [None]
